FAERS Safety Report 7023175-7 (Version None)
Quarter: 2010Q3

REPORT INFORMATION
  Report Type: 
  Country: None (occurrence: None)
  Receive Date: 20100930
  Receipt Date: 20100922
  Transmission Date: 20110219
  Serious: Yes (Other)
  Sender: FDA-Public Use
  Company Number: US-PFIZER INC-2010120984

PATIENT
  Age: 86 Year
  Sex: Female

DRUGS (3)
  1. LIPITOR [Suspect]
  2. XALATAN [Suspect]
  3. VERAPAMIL HCL [Suspect]

REACTIONS (3)
  - DISORIENTATION [None]
  - DIZZINESS [None]
  - VOMITING [None]
